FAERS Safety Report 23826063 (Version 1)
Quarter: 2024Q2

REPORT INFORMATION
  Report Type: Spontaneous
  Country: US (occurrence: US)
  Receive Date: 20240507
  Receipt Date: 20240507
  Transmission Date: 20240716
  Serious: No
  Sender: FDA-Public Use
  Company Number: US-PFIZER INC-202400100793

PATIENT
  Age: 74 Year
  Sex: Male

DRUGS (5)
  1. VYNDAMAX [Interacting]
     Active Substance: TAFAMIDIS
     Dosage: UNK
  2. ROSUVASTATIN [Interacting]
     Active Substance: ROSUVASTATIN
     Dosage: 10 MG
  3. ROSUVASTATIN [Interacting]
     Active Substance: ROSUVASTATIN
     Dosage: 40 MG
  4. ROSUVASTATIN [Interacting]
     Active Substance: ROSUVASTATIN
     Dosage: 20 MG
  5. ROSUVASTATIN [Interacting]
     Active Substance: ROSUVASTATIN
     Dosage: UNK

REACTIONS (2)
  - Drug interaction [Unknown]
  - Muscle spasms [Unknown]
